FAERS Safety Report 22922119 (Version 2)
Quarter: 2024Q3

REPORT INFORMATION
  Report Type: Spontaneous
  Country: US (occurrence: None)
  Receive Date: 20230908
  Receipt Date: 20240906
  Transmission Date: 20241017
  Serious: No
  Sender: DOMPE FARMACEUTICI
  Company Number: US-FARMAPROD-202301-0074

PATIENT
  Sex: Female

DRUGS (15)
  1. OXERVATE [Suspect]
     Active Substance: CENEGERMIN-BKBJ
     Indication: Neurotrophic keratopathy
     Route: 047
     Dates: start: 20201027, end: 20201222
  2. OXERVATE [Suspect]
     Active Substance: CENEGERMIN-BKBJ
     Route: 047
     Dates: start: 20230105
  3. OXERVATE [Suspect]
     Active Substance: CENEGERMIN-BKBJ
  4. TRAMADOL HCL [Concomitant]
     Active Substance: TRAMADOL HYDROCHLORIDE
  5. POLYMYXIN B SUL-TRIMETHOPRIM [Concomitant]
  6. DUPIXENT [Concomitant]
     Active Substance: DUPILUMAB
     Dosage: 300 MG / 2ML SYRINGE
  7. AFRIN [Concomitant]
     Active Substance: OXYMETAZOLINE
     Dosage: MIST
  8. VITAMIN D2 [Concomitant]
     Active Substance: ERGOCALCIFEROL
  9. RIFAMPIN [Concomitant]
     Active Substance: RIFAMPIN
  10. AUGMENTIN XR [Concomitant]
     Active Substance: AMOXICILLIN\CLAVULANATE POTASSIUM
     Dosage: 1000-62.5 SUSTAINED RELEASE FOR 12 HOURS
  11. DORZOLAMIDE\TIMOLOL [Concomitant]
     Active Substance: DORZOLAMIDE\TIMOLOL
  12. REFRESH CLASSIC [Concomitant]
     Active Substance: POLYVINYL ALCOHOL\POVIDONE
  13. PREDNISOLONE-NEPAFENAC [Concomitant]
  14. ERYTHROMYCIN [Concomitant]
     Active Substance: ERYTHROMYCIN
  15. UNSPECIFIED INGREDIENT [Concomitant]
     Active Substance: UNSPECIFIED INGREDIENT

REACTIONS (2)
  - Disease recurrence [Unknown]
  - Wrong technique in product usage process [Unknown]
